FAERS Safety Report 10031465 (Version 1)
Quarter: 2014Q1

REPORT INFORMATION
  Report Type: Spontaneous
  Country: US (occurrence: US)
  Receive Date: 20140324
  Receipt Date: 20140324
  Transmission Date: 20141002
  Serious: No
  Sender: FDA-Public Use
  Company Number: US-TEVA-455333USA

PATIENT
  Sex: Female

DRUGS (2)
  1. CENESTIN [Suspect]
     Indication: MENOPAUSAL SYMPTOMS
     Dosage: .3 MILLIGRAM DAILY;
     Route: 048
  2. CENESTIN [Suspect]
     Dosage: .6 MILLIGRAM DAILY;
     Route: 048

REACTIONS (3)
  - Metrorrhagia [Recovered/Resolved]
  - Hot flush [Recovered/Resolved]
  - Hepatic enzyme increased [Not Recovered/Not Resolved]
